FAERS Safety Report 20771745 (Version 2)
Quarter: 2022Q2

REPORT INFORMATION
  Report Type: Spontaneous
  Country: US (occurrence: US)
  Receive Date: 20220430
  Receipt Date: 20220503
  Transmission Date: 20220721
  Serious: Yes (Other)
  Sender: FDA-Public Use
  Company Number: CID000000000024257

PATIENT
  Age: 57 Year
  Sex: Male

DRUGS (2)
  1. PROVIGIL [Suspect]
     Active Substance: MODAFINIL
     Route: 065
  2. MODAFINIL [Suspect]
     Active Substance: MODAFINIL
     Route: 065

REACTIONS (3)
  - Recurrent cancer [Unknown]
  - Drug ineffective [Unknown]
  - Fatigue [Unknown]
